FAERS Safety Report 13987795 (Version 2)
Quarter: 2017Q3

REPORT INFORMATION
  Report Type: Report from Study
  Country: SA (occurrence: SA)
  Receive Date: 20170919
  Receipt Date: 20170922
  Transmission Date: 20171128
  Serious: Yes (Death, Life-Threatening, Other)
  Sender: FDA-Public Use
  Company Number: SA-PFIZER INC-2017401714

PATIENT
  Age: 53 Year
  Sex: Male

DRUGS (7)
  1. CASPOFUNGIN [Suspect]
     Active Substance: CASPOFUNGIN
     Indication: PNEUMONIA KLEBSIELLA
     Dosage: UNK
     Dates: start: 2015
  2. KEPPRA [Concomitant]
     Active Substance: LEVETIRACETAM
     Indication: GENERALISED TONIC-CLONIC SEIZURE
     Dosage: 500 MG, 2X/DAY (500 MG BID)
     Dates: start: 201510
  3. VANCOMYCIN HCL [Suspect]
     Active Substance: VANCOMYCIN HYDROCHLORIDE
     Indication: PNEUMONIA KLEBSIELLA
     Dosage: UNK
     Dates: start: 2015
  4. COLISTIN [Suspect]
     Active Substance: COLISTIN
     Indication: ACINETOBACTER INFECTION
     Dosage: UNK
     Dates: start: 2015
  5. TAZOCIN [Suspect]
     Active Substance: PIPERACILLIN SODIUM\TAZOBACTAM SODIUM
     Indication: PNEUMONIA KLEBSIELLA
     Dosage: UNK
     Dates: start: 2015
  6. MEROPENEM. [Suspect]
     Active Substance: MEROPENEM
     Indication: PNEUMONIA KLEBSIELLA
     Dosage: UNK
     Dates: start: 2015
  7. AMIKACIN /00391002/ [Suspect]
     Active Substance: AMIKACIN
     Indication: PNEUMONIA KLEBSIELLA
     Dosage: UNK
     Dates: start: 2015

REACTIONS (2)
  - Drug ineffective [Fatal]
  - Drug resistance [Fatal]
